FAERS Safety Report 23126720 (Version 4)
Quarter: 2024Q3

REPORT INFORMATION
  Report Type: Spontaneous
  Country: US (occurrence: US)
  Receive Date: 20231030
  Receipt Date: 20240909
  Transmission Date: 20241017
  Serious: No
  Sender: PFIZER
  Company Number: US-PFIZER INC-202300347687

PATIENT
  Age: 69 Year
  Sex: Female

DRUGS (8)
  1. XELJANZ XR [Suspect]
     Active Substance: TOFACITINIB CITRATE
     Dosage: 11 MG, 1X/DAY
     Route: 048
     Dates: start: 20230929
  2. OXYCODONE [Concomitant]
     Active Substance: OXYCODONE
     Dosage: UNK
  3. ITRACONAZOLE [Concomitant]
     Active Substance: ITRACONAZOLE
     Dosage: ORAL CAPSULE
  4. GABAPENTIN [Concomitant]
     Active Substance: GABAPENTIN
     Dosage: ORAL CAPSULE
  5. ESTRADIOL [Concomitant]
     Active Substance: ESTRADIOL
     Dosage: ORAL TABLET
  6. MIRALAX [Concomitant]
     Active Substance: POLYETHYLENE GLYCOL 3350
     Dosage: ORAL POWDER 17 GM/SCOOP
  7. GEMTESA [Concomitant]
     Active Substance: VIBEGRON
     Dosage: ORAL TABLET
  8. TRIMETHOPRIM [Concomitant]
     Active Substance: TRIMETHOPRIM
     Dosage: ORAL TABLET

REACTIONS (6)
  - Constipation [Not Recovered/Not Resolved]
  - Energy increased [Unknown]
  - Rash [Unknown]
  - Rosacea [Unknown]
  - Blood pressure increased [Not Recovered/Not Resolved]
  - Herpes zoster [Unknown]

NARRATIVE: CASE EVENT DATE: 20240101
